FAERS Safety Report 6111720-5 (Version None)
Quarter: 2009Q1

REPORT INFORMATION
  Report Type: 
  Country: None (occurrence: None)
  Receive Date: 20090311
  Receipt Date: 20090227
  Transmission Date: 20090719
  Serious: Yes (Other)
  Sender: FDA-Public Use
  Company Number: PHHY2009GB03730

PATIENT
  Sex: Female

DRUGS (1)
  1. CLOZARIL [Suspect]
     Indication: SCHIZOPHRENIA
     Dosage: 150 MG, BID
     Dates: start: 20081231

REACTIONS (2)
  - DRUG ADMINISTRATION ERROR [None]
  - TACHYCARDIA [None]
